FAERS Safety Report 13641379 (Version 1)
Quarter: 2017Q2

REPORT INFORMATION
  Report Type: Spontaneous
  Country: US (occurrence: US)
  Receive Date: 20170610
  Receipt Date: 20170610
  Transmission Date: 20170830
  Serious: No
  Sender: FDA-Public Use
  Company Number: None

PATIENT
  Age: 88 Year
  Sex: Female

DRUGS (1)
  1. AMLODIPINE/VALSARTAN [Suspect]
     Active Substance: AMLODIPINE\VALSARTAN
     Indication: HYPERTENSION
     Route: 048
     Dates: start: 20170606, end: 20170609

REACTIONS (3)
  - Somnolence [None]
  - Product substitution issue [None]
  - Confusional state [None]

NARRATIVE: CASE EVENT DATE: 20170610
